FAERS Safety Report 13805421 (Version 1)
Quarter: 2017Q3

REPORT INFORMATION
  Report Type: Report from Study
  Country: JP (occurrence: JP)
  Receive Date: 20170728
  Receipt Date: 20170728
  Transmission Date: 20171127
  Serious: Yes (Life-Threatening, Other)
  Sender: FDA-Public Use
  Company Number: JP-AMGEN-JPNCT2015124737

PATIENT
  Age: 13 Month
  Sex: Male
  Weight: 3 kg

DRUGS (73)
  1. DARBEPOETIN ALFA [Suspect]
     Active Substance: DARBEPOETIN ALFA
     Dosage: 5 MUG, QD
     Route: 058
     Dates: start: 20141016
  2. DARBEPOETIN ALFA [Suspect]
     Active Substance: DARBEPOETIN ALFA
     Dosage: 10 MUG, Q2WK
     Route: 058
     Dates: start: 20141111
  3. INCREMIN [Concomitant]
     Active Substance: FERRIC PYROPHOSPHATE
     Indication: IRON DEFICIENCY ANAEMIA
     Dosage: UNK
     Route: 048
  4. ALFAROL [Concomitant]
     Active Substance: ALFACALCIDOL
     Indication: HYPERPARATHYROIDISM SECONDARY
     Dosage: UNK
     Route: 048
  5. FLORID-D [Concomitant]
     Active Substance: MICONAZOLE
     Indication: ECZEMA
     Dosage: UNK
     Route: 061
  6. SOLITA-T2 [Concomitant]
     Indication: RENAL DYSPLASIA
     Dosage: UNK
     Route: 048
  7. HIRUDOID [Concomitant]
     Active Substance: GLYCOSAMINOGLYCANS
     Indication: ECZEMA
     Dosage: UNK
     Route: 061
  8. DARBEPOETIN ALFA [Suspect]
     Active Substance: DARBEPOETIN ALFA
     Dosage: 5 MUG, QD
     Route: 058
     Dates: start: 20140418
  9. ENALART [Concomitant]
     Active Substance: ENALAPRIL MALEATE
     Indication: HYPERTENSION
     Dosage: UNK
     Route: 048
  10. THYRADIN S [Concomitant]
     Active Substance: LEVOTHYROXINE SODIUM
     Indication: HYPOTHYROIDISM
     Dosage: UNK
     Route: 048
  11. HEPARIN SODIUM. [Concomitant]
     Active Substance: HEPARIN SODIUM
     Indication: RENAL DYSPLASIA
     Dosage: UNK
     Route: 065
  12. PRECIPITATED CALCIUM CARBONATE [Concomitant]
     Active Substance: CALCIUM CARBONATE
     Indication: HYPERPARATHYROIDISM SECONDARY
     Dosage: UNK
     Route: 048
  13. GLYCERIN. [Concomitant]
     Active Substance: GLYCERIN
     Indication: CONSTIPATION
     Dosage: UNK
     Route: 054
  14. PERDIPINE [Concomitant]
     Active Substance: NICARDIPINE HYDROCHLORIDE
     Indication: HYPERTENSION
     Dosage: UNK
     Route: 065
  15. PREVENAR [Concomitant]
     Active Substance: PNEUMOCOCCAL 7-VALENT CONJUGATE VACCINE (DIPHTHERIA CRM197 PROTEIN)
     Dosage: UNK
     Route: 058
  16. ATARAX-P [Concomitant]
     Active Substance: HYDROXYZINE HYDROCHLORIDE
     Indication: INSOMNIA
     Dosage: UNK
     Route: 048
  17. DARBEPOETIN ALFA [Suspect]
     Active Substance: DARBEPOETIN ALFA
     Indication: PRODUCT USED FOR UNKNOWN INDICATION
     Dosage: 3 MUG, QD
     Route: 058
     Dates: start: 20140312
  18. MILRILA [Concomitant]
     Active Substance: MILRINONE
     Indication: CARDIAC FAILURE
     Dosage: UNK
     Route: 042
  19. MILLISROL [Concomitant]
     Indication: HYPERTENSION
     Dosage: UNK
     Route: 041
  20. L CARTIN [Concomitant]
     Active Substance: LEVOCARNITINE HYDROCHLORIDE
     Indication: CARNITINE DEFICIENCY
     Dosage: UNK
     Route: 048
  21. MUCOSOLVAN [Concomitant]
     Active Substance: AMBROXOL HYDROCHLORIDE
     Indication: LUNG DISORDER
     Dosage: UNK
     Route: 048
  22. CLARITH [Concomitant]
     Active Substance: CLARITHROMYCIN
     Indication: LUNG DISORDER
     Dosage: UNK
     Route: 048
  23. PICOSULFATE NA [Concomitant]
     Indication: CONSTIPATION
     Dosage: UNK
     Route: 048
  24. AMLODIPINE [Concomitant]
     Active Substance: AMLODIPINE BESYLATE
     Indication: HYPERTENSION
     Dosage: UNK
     Route: 048
  25. FLUBIK HA [Concomitant]
     Active Substance: INFLUENZA VIRUS VACCINE
     Dosage: UNK
     Route: 058
  26. DARBEPOETIN ALFA [Suspect]
     Active Substance: DARBEPOETIN ALFA
     Dosage: 10 MUG, Q2WK
     Route: 058
     Dates: start: 20141222
  27. HERBAL NOS [Concomitant]
     Active Substance: HERBALS
     Dosage: UNK
     Route: 048
  28. DAIKENCHUTO [Concomitant]
     Active Substance: HERBALS
     Indication: CONSTIPATION
     Dosage: UNK
     Route: 048
  29. KAYEXALATE [Concomitant]
     Active Substance: SODIUM POLYSTYRENE SULFONATE
     Indication: RENAL DYSPLASIA
     Dosage: UNK
     Route: 048
  30. ALMETA [Concomitant]
     Active Substance: ALCLOMETASONE DIPROPIONATE
     Indication: ECZEMA
     Dosage: UNK
     Route: 061
  31. MIRCERA [Concomitant]
     Active Substance: METHOXY POLYETHYLENE GLYCOL-EPOETIN BETA
     Indication: RENAL DYSPLASIA
     Dosage: UNK
     Route: 065
  32. TETRABIK [Concomitant]
     Active Substance: DIPHTHERIA AND TETANUS TOXOIDS AND ACELLULAR PERTUSSIS ADSORBED AND INACTIVATED POLIOVIRUS VACCINE
     Dosage: UNK
     Route: 058
  33. VARICELLA VACCINE LIVE ATTENUATED [Concomitant]
     Dosage: UNK
     Route: 058
  34. CARTINE [Concomitant]
     Indication: CARNITINE DEFICIENCY
     Dosage: UNK
     Route: 048
  35. INOVAN [Concomitant]
     Active Substance: DOPAMINE HYDROCHLORIDE
     Indication: CARDIAC FAILURE
     Dosage: UNK
     Route: 042
  36. DARBEPOETIN ALFA [Suspect]
     Active Substance: DARBEPOETIN ALFA
     Dosage: 5 MUG, QD
     Route: 058
     Dates: start: 20140423
  37. DARBEPOETIN ALFA [Suspect]
     Active Substance: DARBEPOETIN ALFA
     Dosage: 3.5 MUG, Q3WK
     Route: 058
     Dates: start: 20140722
  38. BLOPRESS [Concomitant]
     Active Substance: CANDESARTAN CILEXETIL
     Indication: HYPERTENSION
     Dosage: UNK
     Route: 048
  39. SATOSALBE [Concomitant]
     Active Substance: ZINC OXIDE
     Indication: ECZEMA
     Dosage: UNK
     Route: 061
  40. GENTACIN [Concomitant]
     Active Substance: GENTAMICIN SULFATE
     Indication: RENAL DYSPLASIA
     Dosage: UNK
     Route: 061
  41. DECADRON [Concomitant]
     Active Substance: DEXAMETHASONE
     Indication: LUNG DISORDER
     Dosage: UNK
     Route: 048
  42. MEARUBIK [Concomitant]
     Dosage: UNK
     Route: 058
  43. SYNAGIS [Concomitant]
     Active Substance: PALIVIZUMAB
     Dosage: UNK
     Route: 030
  44. ULTIVA [Concomitant]
     Active Substance: REMIFENTANIL HYDROCHLORIDE
     Dosage: UNK
     Route: 042
  45. DARBEPOETIN ALFA [Suspect]
     Active Substance: DARBEPOETIN ALFA
     Dosage: 2.5 MUG, QD
     Route: 058
     Dates: start: 20140413
  46. DARBEPOETIN ALFA [Suspect]
     Active Substance: DARBEPOETIN ALFA
     Dosage: 3.5 MUG, Q4WK
     Route: 058
     Dates: start: 20140603
  47. DARBEPOETIN ALFA [Suspect]
     Active Substance: DARBEPOETIN ALFA
     Dosage: 5 MUG, Q2WK
     Route: 058
     Dates: start: 20140826
  48. BIOFERMIN [Concomitant]
     Active Substance: BACILLUS SUBTILIS\LACTOBACILLUS ACIDOPHILUS\STREPTOCOCCUS FAECAIS
     Indication: LOW BIRTH WEIGHT BABY
     Dosage: UNK
     Route: 048
  49. STERICLON [Concomitant]
     Active Substance: CHLORHEXIDINE GLUCONATE
     Indication: RENAL DYSPLASIA
     Dosage: UNK
     Route: 061
  50. HUMULIN R [Concomitant]
     Active Substance: INSULIN HUMAN
     Indication: RENAL DYSPLASIA
     Dosage: UNK
     Route: 065
  51. RINDERON VG [Concomitant]
     Active Substance: BETAMETHASONE VALERATE\GENTAMICIN SULFATE
     Indication: RENAL DYSPLASIA
     Dosage: UNK
     Route: 061
  52. NEO-MEDROL [Concomitant]
     Active Substance: METHYLPREDNISOLONE\NEOMYCIN SULFATE
     Indication: ECZEMA
     Dosage: UNK
     Route: 061
  53. GASMOTIN [Concomitant]
     Active Substance: MOSAPRIDE CITRATE
     Indication: LOW BIRTH WEIGHT BABY
     Dosage: UNK
     Route: 048
  54. PROPETO [Concomitant]
     Indication: ECZEMA
     Dosage: UNK
     Route: 061
  55. PRIVINA [Concomitant]
     Active Substance: NAPHAZOLINE NITRATE
     Indication: LUNG DISORDER
     Dosage: UNK
     Route: 065
  56. VENETLIN [Concomitant]
     Active Substance: ALBUTEROL SULFATE
     Indication: LUNG DISORDER
     Dosage: UNK
     Route: 055
  57. BCG VACCINE, FREEZE-DRIED [Concomitant]
     Dosage: UNK
     Route: 058
  58. NORVASC [Concomitant]
     Active Substance: AMLODIPINE BESYLATE
     Indication: HYPERTENSION
     Dosage: UNK
     Route: 048
  59. AZUNOL [Concomitant]
     Active Substance: SODIUM GUALENATE
     Indication: ECZEMA
     Dosage: UNK
     Route: 061
  60. MIYA-BM [Concomitant]
     Active Substance: CLOSTRIDIUM BUTYRICUM SPORES STRAIN M-55
     Indication: CONSTIPATION
     Dosage: UNK
     Route: 048
  61. ZINC OXIDE SIMPLE OINTMENT [Concomitant]
     Active Substance: ZINC OXIDE
     Indication: ECZEMA
     Dosage: UNK
     Route: 061
  62. HOKUNALIN [Concomitant]
     Active Substance: TULOBUTEROL
     Indication: LUNG DISORDER
     Dosage: UNK
     Route: 062
  63. TRICLORYL [Concomitant]
     Active Substance: TRICLOFOS SODIUM
     Dosage: UNK
     Route: 048
  64. ACTHIB [Concomitant]
     Active Substance: HAEMOPHILUS B CONJUGATE VACCINE (TETANUS TOXOID CONJUGATE)\HAEMOPHILUS INFLUENZAE TYPE B STRAIN 1482 CAPSULAR POLYSACCHARIDE TETANUS TOXOID CONJUGATE ANTIGEN
     Dosage: UNK
     Route: 058
  65. MUMPS VACCINE (LIVE ATTENUATED) [Concomitant]
     Dosage: UNK
     Route: 058
  66. FENTANYL. [Concomitant]
     Active Substance: FENTANYL
     Dosage: UNK
     Route: 042
  67. MIDAZOLAM [Concomitant]
     Active Substance: MIDAZOLAM HYDROCHLORIDE
     Dosage: UNK
     Route: 065
  68. DARBEPOETIN ALFA [Suspect]
     Active Substance: DARBEPOETIN ALFA
     Dosage: 3.5 MUG, QD
     Route: 058
     Dates: start: 20140520
  69. LASIX [Concomitant]
     Active Substance: FUROSEMIDE
     Indication: RENAL DYSPLASIA
     Dosage: UNK
     Route: 048
  70. MUCODYNE [Concomitant]
     Active Substance: CARBOCYSTEINE
     Indication: LUNG DISORDER
     Dosage: UNK
     Route: 048
  71. CARBOCISTEINE [Concomitant]
     Active Substance: CARBOCYSTEINE
     Indication: LUNG DISORDER
     Dosage: UNK
     Route: 048
  72. PRANLUKAST [Concomitant]
     Active Substance: PRANLUKAST
     Indication: LUNG DISORDER
     Dosage: UNK
     Route: 048
  73. ZADITEN [Concomitant]
     Active Substance: KETOTIFEN FUMARATE
     Indication: CONJUNCTIVITIS ALLERGIC
     Dosage: UNK
     Route: 047

REACTIONS (8)
  - Hyperkalaemia [Recovered/Resolved]
  - Blood alkaline phosphatase increased [Not Recovered/Not Resolved]
  - White blood cell count increased [Recovering/Resolving]
  - Catheter site infection [Recovering/Resolving]
  - Aspartate aminotransferase increased [Recovered/Resolved]
  - Incarcerated inguinal hernia [Recovering/Resolving]
  - C-reactive protein increased [Recovered/Resolved]
  - Hypertension [Recovering/Resolving]

NARRATIVE: CASE EVENT DATE: 20140312
